FAERS Safety Report 16551754 (Version 1)
Quarter: 2019Q3

REPORT INFORMATION
  Report Type: Spontaneous
  Country: US (occurrence: US)
  Receive Date: 20190529
  Receipt Date: 20190529
  Transmission Date: 20191004
  Serious: No
  Sender: FDA-Public Use
  Company Number: None

PATIENT
  Age: 45 Year
  Sex: Female

DRUGS (14)
  1. LATOTRIGINE [Concomitant]
  2. OCALIVA [Suspect]
     Active Substance: OBETICHOLIC ACID
     Indication: PRIMARY BILIARY CHOLANGITIS
     Route: 048
     Dates: start: 20190322
  3. ALBUTEROL. [Concomitant]
     Active Substance: ALBUTEROL
  4. NORCO [Concomitant]
     Active Substance: ACETAMINOPHEN\HYDROCODONE BITARTRATE
  5. PANTOPRAZOLE [Concomitant]
     Active Substance: PANTOPRAZOLE
  6. URSODIOL. [Concomitant]
     Active Substance: URSODIOL
  7. CLONAZEPAM. [Concomitant]
     Active Substance: CLONAZEPAM
  8. MULIT VIT [Concomitant]
  9. IBUPROFEN. [Concomitant]
     Active Substance: IBUPROFEN
  10. IMITREX [Concomitant]
     Active Substance: SUMATRIPTAN SUCCINATE
  11. WELLBUTRIN [Concomitant]
     Active Substance: BUPROPION HYDROCHLORIDE
  12. VIT D [Concomitant]
     Active Substance: VITAMIN D NOS
  13. BUSPIRONE [Concomitant]
     Active Substance: BUSPIRONE HYDROCHLORIDE
  14. ONDANSETRON [Concomitant]
     Active Substance: ONDANSETRON

REACTIONS (3)
  - Therapy cessation [None]
  - Dry mouth [None]
  - Dizziness [None]

NARRATIVE: CASE EVENT DATE: 20190417
